FAERS Safety Report 5033056-6 (Version None)
Quarter: 2006Q2

REPORT INFORMATION
  Report Type: 
  Country: None (occurrence: None)
  Receive Date: 20060620
  Receipt Date: 20060531
  Transmission Date: 20061013
  Serious: Yes (Other)
  Sender: FDA-Public Use
  Company Number: US200606000111

PATIENT
  Age: 67 Year
  Sex: Male

DRUGS (3)
  1. HUMALOG MIX 75/25 [Suspect]
     Indication: BLOOD GLUCOSE INCREASED
     Dosage: 100 U, 2/D
     Dates: start: 20010101
  2. HUMALOG MIX 75/25 [Suspect]
     Indication: BLOOD GLUCOSE INCREASED
     Dosage: 100 U, 2/D
     Dates: start: 20010101
  3. GLUCOPHAGE ^UNS^ (METFORMIN HYDROCHLORIDE) [Concomitant]

REACTIONS (5)
  - CONTUSION [None]
  - INJECTION SITE BRUISING [None]
  - INJECTION SITE PAIN [None]
  - PHARMACEUTICAL PRODUCT COMPLAINT [None]
  - RENAL IMPAIRMENT [None]
